FAERS Safety Report 11452725 (Version 1)
Quarter: 2015Q3

REPORT INFORMATION
  Report Type: Spontaneous
  Country: US (occurrence: US)
  Receive Date: 20150831
  Receipt Date: 20150831
  Transmission Date: 20151125
  Serious: No
  Sender: FDA-Public Use
  Company Number: US-ELI_LILLY_AND_COMPANY-US200909004959

PATIENT
  Sex: Female

DRUGS (23)
  1. OXYCONTIN [Concomitant]
     Active Substance: OXYCODONE HYDROCHLORIDE
  2. TRANSDERM SCOP [Concomitant]
     Active Substance: SCOPOLAMINE
     Dosage: 1.5 MG, UNK
  3. LISINOPRIL. [Concomitant]
     Active Substance: LISINOPRIL
  4. KETOCONAZOLE. [Concomitant]
     Active Substance: KETOCONAZOLE
  5. MECLIZINE [Concomitant]
     Active Substance: MECLIZINE\MECLIZINE HYDROCHLORIDE
  6. FLONASE [Concomitant]
     Active Substance: FLUTICASONE PROPIONATE
  7. VIVELLE [Concomitant]
     Active Substance: ESTRADIOL
  8. CYMBALTA [Suspect]
     Active Substance: DULOXETINE HYDROCHLORIDE
     Dosage: 60 MG, DAILY (1/D)
     Dates: start: 200704, end: 20090819
  9. ZOVIRAX [Concomitant]
     Active Substance: ACYCLOVIR
  10. LIDEX [Concomitant]
     Active Substance: FLUOCINONIDE
  11. MILNACIPRAN [Concomitant]
     Active Substance: MILNACIPRAN
  12. AURALGAN /00058501/ [Concomitant]
     Dosage: UNK, AS NEEDED
  13. OPANA [Concomitant]
     Active Substance: OXYMORPHONE HYDROCHLORIDE
  14. ESTRADIOL. [Concomitant]
     Active Substance: ESTRADIOL
  15. SIMVASTATIN. [Concomitant]
     Active Substance: SIMVASTATIN
  16. ULTRAVATE [Concomitant]
     Active Substance: HALOBETASOL PROPIONATE
  17. SPECTAZOLE [Concomitant]
     Active Substance: ECONAZOLE NITRATE
  18. CHOLESTYRAMINE. [Concomitant]
     Active Substance: CHOLESTYRAMINE
  19. PRILOSEC [Concomitant]
     Active Substance: OMEPRAZOLE MAGNESIUM
  20. FLEXERIL [Concomitant]
     Active Substance: CYCLOBENZAPRINE HYDROCHLORIDE
  21. NORCO [Concomitant]
     Active Substance: ACETAMINOPHEN\HYDROCODONE BITARTRATE
     Dosage: UNK, 4/D
  22. TOPAMAX [Concomitant]
     Active Substance: TOPIRAMATE
  23. FELDENE [Concomitant]
     Active Substance: PIROXICAM

REACTIONS (7)
  - Vomiting [Unknown]
  - Headache [Unknown]
  - Tinnitus [Unknown]
  - Motion sickness [Unknown]
  - Paraesthesia [Unknown]
  - Nausea [Unknown]
  - Nightmare [Unknown]
